FAERS Safety Report 17032726 (Version 1)
Quarter: 2019Q4

REPORT INFORMATION
  Report Type: Spontaneous
  Country: CH (occurrence: CH)
  Receive Date: 20191114
  Receipt Date: 20191114
  Transmission Date: 20200122
  Serious: Yes (Other)
  Sender: FDA-Public Use
  Company Number: CH-ASTRAZENECA-2019SF61406

PATIENT
  Sex: Male

DRUGS (2)
  1. TAGRISSO [Suspect]
     Active Substance: OSIMERTINIB
     Indication: LUNG ADENOCARCINOMA
     Route: 048
  2. ALIMTA [Concomitant]
     Active Substance: PEMETREXED DISODIUM

REACTIONS (2)
  - Malignant neoplasm progression [Unknown]
  - Drug resistance [Unknown]
